FAERS Safety Report 6648995-X (Version None)
Quarter: 2010Q1

REPORT INFORMATION
  Report Type: 
  Country: None (occurrence: None)
  Receive Date: 20100324
  Receipt Date: 20100324
  Transmission Date: 20100710
  Serious: Yes (Hospitalization)
  Sender: FDA-Public Use
  Company Number: AU-ROXANE LABORATORIES, INC.-2009-DE-05392GD

PATIENT
  Age: 0 Year
  Sex: Male

DRUGS (1)
  1. CODEINE SULFATE [Suspect]
     Indication: POSTOPERATIVE ANALGESIA

REACTIONS (2)
  - RESPIRATORY RATE DECREASED [None]
  - WHEEZING [None]
